FAERS Safety Report 23452659 (Version 1)
Quarter: 2024Q1

REPORT INFORMATION
  Report Type: Spontaneous
  Country: US (occurrence: US)
  Receive Date: 20240129
  Receipt Date: 20240129
  Transmission Date: 20240409
  Serious: Yes (Hospitalization, Other)
  Sender: FDA-Public Use
  Company Number: US-HIKMA PHARMACEUTICALS USA INC.-US-H14001-24-00591

PATIENT

DRUGS (1)
  1. METOPROLOL [Suspect]
     Active Substance: METOPROLOL
     Indication: Product used for unknown indication
     Dosage: UNK
     Route: 065

REACTIONS (8)
  - Blood potassium increased [Unknown]
  - Coma [Unknown]
  - Body temperature decreased [Unknown]
  - Near death experience [Unknown]
  - Cardiac arrest [Unknown]
  - Dyspnoea [Unknown]
  - Eye colour change [Unknown]
  - Eye movement disorder [Unknown]
